FAERS Safety Report 25820632 (Version 1)
Quarter: 2025Q3

REPORT INFORMATION
  Report Type: Spontaneous
  Country: US (occurrence: US)
  Receive Date: 20250919
  Receipt Date: 20250919
  Transmission Date: 20251020
  Serious: No
  Sender: NOVARTIS
  Company Number: US-002147023-NVSC2025US140518

PATIENT
  Age: 89 Year
  Sex: Female
  Weight: 56.7 kg

DRUGS (2)
  1. ENTRESTO [Suspect]
     Active Substance: SACUBITRIL\VALSARTAN
     Indication: Cardiac failure congestive
     Dosage: UNK UNK, QD
     Route: 065
     Dates: start: 20250905, end: 20250906
  2. BUMEX [Suspect]
     Active Substance: BUMETANIDE
     Indication: Cardiac failure congestive
     Route: 065
     Dates: start: 20250906, end: 20250906

REACTIONS (1)
  - Asthenia [Recovering/Resolving]

NARRATIVE: CASE EVENT DATE: 20250906
